FAERS Safety Report 9231130 (Version 4)
Quarter: 2013Q3

REPORT INFORMATION
  Report Type: Spontaneous
  Country: US (occurrence: US)
  Receive Date: 20130415
  Receipt Date: 20130801
  Transmission Date: 20140515
  Serious: Yes (Other)
  Sender: FDA-Public Use
  Company Number: US-PFIZER INC-2013114417

PATIENT
  Age: 69 Year
  Sex: Male

DRUGS (1)
  1. LIPITOR [Suspect]
     Dosage: UNK

REACTIONS (6)
  - Nephrolithiasis [Not Recovered/Not Resolved]
  - Carotid artery occlusion [Unknown]
  - Amnesia [Unknown]
  - Blood glucose increased [Unknown]
  - Confusional state [Unknown]
  - Renal pain [Unknown]
